FAERS Safety Report 7797594-5 (Version None)
Quarter: 2011Q4

REPORT INFORMATION
  Report Type: 
  Country: None (occurrence: None)
  Receive Date: 20111003
  Receipt Date: 20100920
  Transmission Date: 20120403
  Serious: No
  Sender: FDA-Public Use
  Company Number: AEUSA201000358

PATIENT
  Sex: Female

DRUGS (1)
  1. HYPERRHO [Suspect]
     Indication: PROPHYLAXIS AGAINST RH ISOIMMUNISATION
     Dosage: 1500 IU;1X;IV
     Route: 042
     Dates: start: 20100920, end: 20100920

REACTIONS (1)
  - INCORRECT ROUTE OF DRUG ADMINISTRATION [None]
